FAERS Safety Report 4700917-4 (Version None)
Quarter: 2005Q2

REPORT INFORMATION
  Report Type: 
  Country: None (occurrence: None)
  Receive Date: 20050624
  Receipt Date: 20050614
  Transmission Date: 20051028
  Serious: No
  Sender: FDA-Public Use
  Company Number: US015453

PATIENT
  Age: 24 Month
  Sex: Female

DRUGS (1)
  1. ACTIQ [Suspect]
     Dosage: 1600 UG ONCE BUCCAL
     Route: 002
     Dates: start: 20041001, end: 20041001

REACTIONS (1)
  - ACCIDENTAL DRUG INTAKE BY CHILD [None]
